FAERS Safety Report 5841165-4 (Version None)
Quarter: 2008Q3

REPORT INFORMATION
  Report Type: 
  Country: None (occurrence: None)
  Receive Date: 20080807
  Receipt Date: 20080807
  Transmission Date: 20090109
  Serious: Yes (Other)
  Sender: FDA-Public Use
  Company Number: None

PATIENT
  Age: 42 Year
  Sex: Male
  Weight: 88.4514 kg

DRUGS (2)
  1. SIMVASTATIN [Suspect]
     Indication: BLOOD CHOLESTEROL INCREASED
     Dosage: 40 MG.
  2. SIMVASTATIN [Suspect]
     Indication: FAMILIAL RISK FACTOR
     Dosage: 40 MG.

REACTIONS (4)
  - ALCOHOL USE [None]
  - HEPATIC ENZYME ABNORMAL [None]
  - LOW DENSITY LIPOPROTEIN INCREASED [None]
  - PAIN [None]
